FAERS Safety Report 4657522-8 (Version None)
Quarter: 2005Q2

REPORT INFORMATION
  Report Type: 
  Country: None (occurrence: None)
  Receive Date: 20050509
  Receipt Date: 20050509
  Transmission Date: 20051028
  Serious: Yes (Other)
  Sender: FDA-Public Use
  Company Number: None

PATIENT
  Sex: Male
  Weight: 140.1615 kg

DRUGS (2)
  1. DOXIL [Suspect]
     Indication: NEOPLASM MALIGNANT
     Dosage: 40 MG/M2 Q28 DAYS IV
     Route: 042
     Dates: start: 20050422, end: 20050506
  2. TOPETECAN [Suspect]
     Indication: NEOPLASM MALIGNANT
     Dosage: 2 MG.M2 DAY1, 8, 15 IV
     Route: 042
     Dates: start: 20050422, end: 20050506

REACTIONS (2)
  - GASTRIC HAEMORRHAGE [None]
  - GASTRIC NEOPLASM [None]
